FAERS Safety Report 10207740 (Version 1)
Quarter: 2014Q2

REPORT INFORMATION
  Report Type: Spontaneous
  Country: US (occurrence: None)
  Receive Date: 20140527
  Receipt Date: 20140527
  Transmission Date: 20141212
  Serious: No
  Sender: FDA-Public Use
  Company Number: None

PATIENT
  Age: 64 Year
  Sex: Male

DRUGS (6)
  1. AMOXICILLIN/CLAVULANATE [Suspect]
     Indication: INFECTION
     Dates: start: 201209, end: 201209
  2. CARVEDILOL [Concomitant]
  3. ASPIRIN [Concomitant]
  4. URSODIOL [Concomitant]
  5. LIPITOR [Concomitant]
  6. COLACE [Concomitant]

REACTIONS (4)
  - Drug-induced liver injury [None]
  - Cholestasis [None]
  - Cholelithiasis [None]
  - Drug ineffective [None]
